FAERS Safety Report 7746437-4 (Version None)
Quarter: 2011Q3

REPORT INFORMATION
  Report Type: 
  Country: None (occurrence: None)
  Receive Date: 20110913
  Receipt Date: 20110907
  Transmission Date: 20111222
  Serious: Yes (Hospitalization)
  Sender: FDA-Public Use
  Company Number: US-SANOFI-AVENTIS-2011SA058188

PATIENT
  Sex: Female

DRUGS (3)
  1. ANGIOTENSIN II ANTAGONISTS [Suspect]
     Route: 065
  2. DABIGATRAN [Suspect]
     Route: 065
  3. MULTAQ [Suspect]
     Route: 048

REACTIONS (1)
  - RENAL IMPAIRMENT [None]
